FAERS Safety Report 20144518 (Version 1)
Quarter: 2021Q4

REPORT INFORMATION
  Report Type: Spontaneous
  Country: ID (occurrence: ID)
  Receive Date: 20211203
  Receipt Date: 20211203
  Transmission Date: 20220303
  Serious: Yes (Hospitalization)
  Sender: FDA-Public Use
  Company Number: ID-STRIDES ARCOLAB LIMITED-2021SP030383

PATIENT
  Age: 31 Year
  Sex: Male

DRUGS (2)
  1. PREDNISOLONE [Suspect]
     Active Substance: PREDNISOLONE
     Indication: Leprosy
     Dosage: UNK
     Route: 065
  2. PREDNISOLONE [Suspect]
     Active Substance: PREDNISOLONE
     Dosage: 40 MILLIGRAM, DAILY, SELF-TREATING, OVER A YEAR
     Route: 065

REACTIONS (17)
  - Multiple organ dysfunction syndrome [Recovered/Resolved]
  - Syncope [Recovered/Resolved]
  - Gastritis [Recovered/Resolved]
  - Disseminated intravascular coagulation [Recovered/Resolved]
  - Respiratory alkalosis [Recovered/Resolved]
  - Metabolic acidosis [Recovered/Resolved]
  - Intentional product misuse [Unknown]
  - Helminthic infection [Recovered/Resolved]
  - Hookworm infection [Recovered/Resolved]
  - Trichuriasis [Recovered/Resolved]
  - Type 2 lepra reaction [Recovered/Resolved]
  - Sepsis [Recovered/Resolved]
  - Pancreatitis [Recovered/Resolved]
  - Staphylococcal infection [Unknown]
  - Acinetobacter infection [Unknown]
  - Bacteriuria [Unknown]
  - Septic shock [Recovered/Resolved]
